FAERS Safety Report 10092216 (Version 1)
Quarter: 2014Q2

REPORT INFORMATION
  Report Type: Spontaneous
  Country: US (occurrence: US)
  Receive Date: 20140421
  Receipt Date: 20140421
  Transmission Date: 20141212
  Serious: No
  Sender: FDA-Public Use
  Company Number: US-SANOFI-AVENTIS-2013SA037834

PATIENT
  Age: 67 Year
  Sex: Female

DRUGS (4)
  1. ALLEGRA [Suspect]
     Route: 065
  2. ALLEGRA [Suspect]
     Route: 065
  3. ALLEGRA [Concomitant]
     Indication: DERMATITIS ALLERGIC
     Route: 065
  4. ALLEGRA [Concomitant]
     Indication: PRURITUS
     Route: 065

REACTIONS (1)
  - Therapeutic response increased [Unknown]
